FAERS Safety Report 10011513 (Version 1)
Quarter: 2014Q1

REPORT INFORMATION
  Report Type: Spontaneous
  Country: US (occurrence: US)
  Receive Date: 20140314
  Receipt Date: 20140314
  Transmission Date: 20141002
  Serious: Yes (Other)
  Sender: FDA-Public Use
  Company Number: US-PFIZER INC-2014075006

PATIENT
  Age: 56 Year
  Sex: Female
  Weight: 79.37 kg

DRUGS (1)
  1. XELJANZ [Suspect]
     Indication: RHEUMATOID ARTHRITIS
     Dosage: 05 MG, 1X/DAY
     Dates: end: 201402

REACTIONS (5)
  - Hypersensitivity [Unknown]
  - Pharyngeal oedema [Unknown]
  - Throat irritation [Unknown]
  - Swelling face [Unknown]
  - Lip swelling [Unknown]
